FAERS Safety Report 8218203-7 (Version None)
Quarter: 2012Q1

REPORT INFORMATION
  Report Type: 
  Country: None (occurrence: None)
  Receive Date: 20120319
  Receipt Date: 20120309
  Transmission Date: 20120608
  Serious: Yes (Life-Threatening, Hospitalization)
  Sender: FDA-Public Use
  Company Number: FR-SANOFI-AVENTIS-2012SA016678

PATIENT
  Age: 33 Year
  Sex: Male

DRUGS (1)
  1. INDAPAMIDE [Suspect]
     Route: 048
     Dates: end: 20120211

REACTIONS (6)
  - PANCREATITIS ACUTE [None]
  - HYPERTRIGLYCERIDAEMIA [None]
  - HYPOTENSION [None]
  - HEART RATE INCREASED [None]
  - ABDOMINAL PAIN [None]
  - TACHYCARDIA [None]
